FAERS Safety Report 23385668 (Version 2)
Quarter: 2024Q1

REPORT INFORMATION
  Report Type: Spontaneous
  Country: US (occurrence: US)
  Receive Date: 20240110
  Receipt Date: 20240118
  Transmission Date: 20240410
  Serious: Yes (Disabling, Other)
  Sender: FDA-Public Use
  Company Number: US-HORIZON THERAPEUTICS-HZN-2023-008095

PATIENT

DRUGS (20)
  1. TEPEZZA [Suspect]
     Active Substance: TEPROTUMUMAB-TRBW
     Indication: Endocrine ophthalmopathy
     Dosage: 1130 MG, EVERY 3 WEEKS, FIRST INFUSION
     Route: 042
     Dates: start: 20211028, end: 20211028
  2. TEPEZZA [Suspect]
     Active Substance: TEPROTUMUMAB-TRBW
     Dosage: 2161 MG, EVERY 3 WEEKS, SECOND INFUSION
     Route: 042
     Dates: start: 20211117, end: 20211117
  3. TEPEZZA [Suspect]
     Active Substance: TEPROTUMUMAB-TRBW
     Dosage: 2156 MG, EVERY 3 WEEKS, THIRD INFUSION
     Route: 042
     Dates: start: 20211209, end: 20211209
  4. TEPEZZA [Suspect]
     Active Substance: TEPROTUMUMAB-TRBW
     Dosage: 2180 MG, EVERY 3 WEEKS, FOURTH INFUSION
     Route: 042
     Dates: start: 20211230, end: 20211230
  5. TEPEZZA [Suspect]
     Active Substance: TEPROTUMUMAB-TRBW
     Dosage: 2171 MG, EVERY 3 WEEKS, FIFTH INFUSION
     Route: 042
     Dates: start: 20220127, end: 20220127
  6. TEPEZZA [Suspect]
     Active Substance: TEPROTUMUMAB-TRBW
     Dosage: 2156 MG, EVERY 3 WEEKS, SIXTH INFUSION
     Route: 042
     Dates: start: 20220217, end: 20220217
  7. TEPEZZA [Suspect]
     Active Substance: TEPROTUMUMAB-TRBW
     Dosage: 2108 MG, EVERY 3 WEEKS, SEVENTH INFUSION
     Route: 042
     Dates: start: 20220310, end: 20220310
  8. TEPEZZA [Suspect]
     Active Substance: TEPROTUMUMAB-TRBW
     Dosage: 2109 MG, EVERY 3 WEEKS, EIGHTH INFUSION
     Route: 042
     Dates: start: 20220331, end: 20220331
  9. Immunoglobulin [Concomitant]
     Indication: Autoimmune thyroiditis
  10. DICLOFENAC POTASSIUM [Concomitant]
     Active Substance: DICLOFENAC POTASSIUM
     Dosage: 1 DOSAGE FORM, BID, WITH MEALS FOR 30 DAYS
     Route: 048
  11. SELENIUM [Concomitant]
     Active Substance: SELENIUM
     Indication: Autoimmune thyroiditis
     Dosage: 1 DOSAGE FORM, QD, FOR 90 DAYS
     Route: 048
     Dates: start: 20210908
  12. ALBUTEROL SULFATE [Concomitant]
     Active Substance: ALBUTEROL SULFATE
     Dosage: 2 PUFF, EVERY 4 HOURS
     Dates: start: 20210903
  13. FLUOXETINE [Concomitant]
     Active Substance: FLUOXETINE HYDROCHLORIDE
     Dosage: 1 DOSAGE FORM, QD
     Route: 048
     Dates: start: 20210903
  14. IBUPROFEN [Concomitant]
     Active Substance: IBUPROFEN
     Dosage: 2 DOSAGE FORM, EVERY 4 HOURS
     Route: 048
     Dates: start: 20210908
  15. AMLODIPINE [Concomitant]
     Active Substance: AMLODIPINE BESYLATE
     Dosage: 1 DOSAGE FORM, QD
     Route: 048
     Dates: start: 20210903
  16. LEVOTHYROXINE [Concomitant]
     Active Substance: LEVOTHYROXINE\LEVOTHYROXINE SODIUM
     Dosage: 1 DOSAGE FORM, QD
     Route: 048
     Dates: start: 20210903
  17. OMEPRAZOLE [Concomitant]
     Active Substance: OMEPRAZOLE
     Dosage: UNK
     Route: 048
     Dates: start: 20210903
  18. VITAMIN B12 [Concomitant]
     Active Substance: CYANOCOBALAMIN
     Dosage: UNK UNK, QD
     Route: 048
  19. VITAMIN D3 [Concomitant]
     Active Substance: CHOLECALCIFEROL
     Dosage: UNK UNK, QD
     Route: 048
     Dates: start: 20211028
  20. HYDROXYZINE HYDROCHLORIDE [Concomitant]
     Active Substance: HYDROXYZINE HYDROCHLORIDE
     Dosage: 10 MG
     Route: 048
     Dates: start: 20211230

REACTIONS (20)
  - Deafness [Not Recovered/Not Resolved]
  - Disability [Not Recovered/Not Resolved]
  - Physical disability [Not Recovered/Not Resolved]
  - Seasonal allergy [Unknown]
  - Diplopia [Unknown]
  - Concomitant disease aggravated [Not Recovered/Not Resolved]
  - Emotional distress [Not Recovered/Not Resolved]
  - Anxiety [Not Recovered/Not Resolved]
  - Impaired quality of life [Not Recovered/Not Resolved]
  - Injury [Not Recovered/Not Resolved]
  - Discomfort [Not Recovered/Not Resolved]
  - Auditory disorder [Not Recovered/Not Resolved]
  - Economic problem [Not Recovered/Not Resolved]
  - Pain [Not Recovered/Not Resolved]
  - Product quality issue [Not Recovered/Not Resolved]
  - Diarrhoea [Recovered/Resolved]
  - Muscle spasms [Unknown]
  - Tinnitus [Not Recovered/Not Resolved]
  - Diarrhoea [Unknown]
  - Headache [Unknown]

NARRATIVE: CASE EVENT DATE: 20220201
